FAERS Safety Report 12268874 (Version 1)
Quarter: 2016Q2

REPORT INFORMATION
  Report Type: Spontaneous
  Country: US (occurrence: US)
  Receive Date: 20160414
  Receipt Date: 20160414
  Transmission Date: 20160815
  Serious: No
  Sender: FDA-Public Use
  Company Number: GXBR2016US000830

PATIENT
  Sex: Male
  Weight: 86.17 kg

DRUGS (1)
  1. KETOCONAZOLE. [Suspect]
     Active Substance: KETOCONAZOLE
     Indication: FUNGAL TEST POSITIVE
     Dosage: 60 G, UNK
     Route: 061

REACTIONS (2)
  - Application site irritation [Not Recovered/Not Resolved]
  - Fungal infection [Not Recovered/Not Resolved]
